FAERS Safety Report 10740625 (Version 1)
Quarter: 2015Q1

REPORT INFORMATION
  Report Type: Spontaneous
  Country: US (occurrence: None)
  Receive Date: 20150123
  Receipt Date: 20150123
  Transmission Date: 20150721
  Serious: Yes (Hospitalization)
  Sender: FDA-Public Use
  Company Number: None

PATIENT
  Age: 46 Year
  Sex: Female
  Weight: 77 kg

DRUGS (3)
  1. ERIBULIN [Suspect]
     Active Substance: ERIBULIN
     Indication: SQUAMOUS CELL CARCINOMA
     Dosage: 1.4 (MG/M2 2.66 TOTAL DOSE D1,DE IV CHEMO
     Route: 042
     Dates: start: 20141218, end: 20150115
  2. MULTI VITAMIN [Concomitant]
     Active Substance: VITAMINS
  3. ADVIL [Concomitant]
     Active Substance: IBUPROFEN

REACTIONS (3)
  - VIIth nerve paralysis [None]
  - Confusional state [None]
  - Seizure [None]

NARRATIVE: CASE EVENT DATE: 20150118
